FAERS Safety Report 9715992 (Version 2)
Quarter: 2014Q1

REPORT INFORMATION
  Report Type: Spontaneous
  Country: US (occurrence: US)
  Receive Date: 20131127
  Receipt Date: 20140109
  Transmission Date: 20141002
  Serious: Yes (Hospitalization, Other)
  Sender: FDA-Public Use
  Company Number: US-BAYER-2013-141998

PATIENT
  Age: 24 Year
  Sex: Female
  Weight: 52.15 kg

DRUGS (1)
  1. MIRENA [Suspect]
     Indication: CONTRACEPTION
     Dosage: 20 MCG/24HR, CONT
     Route: 015
     Dates: start: 20110531, end: 20111031

REACTIONS (9)
  - Device dislocation [None]
  - Genital haemorrhage [None]
  - Menstruation irregular [None]
  - Adverse event [None]
  - Device difficult to use [None]
  - Injury [None]
  - Abdominal pain upper [None]
  - Emotional distress [None]
  - Device dislocation [None]
